FAERS Safety Report 9657453 (Version 1)
Quarter: 2013Q4

REPORT INFORMATION
  Report Type: Report from Study
  Country: IN (occurrence: IN)
  Receive Date: 20131030
  Receipt Date: 20131030
  Transmission Date: 20140711
  Serious: Yes (Other)
  Sender: FDA-Public Use
  Company Number: IN-PFIZER INC-2013307118

PATIENT
  Sex: 0

DRUGS (1)
  1. CARBOPLATIN [Suspect]
     Indication: NEOPLASM MALIGNANT
     Dosage: 450 MG, UNK

REACTIONS (2)
  - Haematotoxicity [Unknown]
  - Gastrointestinal toxicity [Unknown]
